FAERS Safety Report 8887651 (Version 6)
Quarter: 2013Q3

REPORT INFORMATION
  Report Type: Spontaneous
  Country: US (occurrence: US)
  Receive Date: 20121106
  Receipt Date: 20130701
  Transmission Date: 20140515
  Serious: Yes (Hospitalization, Other)
  Sender: FDA-Public Use
  Company Number: US-009507513-1205USA00068

PATIENT
  Sex: Female
  Weight: 59.86 kg

DRUGS (10)
  1. FOSAMAX [Suspect]
     Indication: OSTEOPOROSIS
     Dosage: 70 MG, QW
     Route: 048
  2. FOSAMAX [Suspect]
     Indication: OSTEOPENIA
     Dosage: 5 MG, QD
     Route: 048
     Dates: start: 20010521
  3. BONIVA [Suspect]
     Indication: OSTEOPOROSIS
     Dosage: 150 MG, UNK
     Route: 048
     Dates: start: 20061006, end: 20081003
  4. BONIVA [Suspect]
     Indication: OSTEOPENIA
  5. ALENDRONATE SODIUM [Suspect]
     Indication: OSTEOPOROSIS
     Dosage: 70 MG, UNK
     Route: 048
     Dates: start: 20081003, end: 20100106
  6. ALENDRONATE SODIUM [Suspect]
     Indication: OSTEOPENIA
  7. VITAMINS (UNSPECIFIED) [Concomitant]
     Dosage: 500 MG, QD
     Route: 048
     Dates: start: 1990
  8. OMEGA-3 MARINE TRIGLYCERIDES [Concomitant]
     Dosage: 1 TSP PER DAY
     Route: 048
     Dates: start: 1990
  9. CALCIUM (UNSPECIFIED) (+) VITAMIN D (UNSPECIFIED) [Concomitant]
     Dosage: 500 MG, QD
     Route: 048
     Dates: start: 1990
  10. EVISTA [Concomitant]
     Dosage: UNK
     Dates: end: 20030609

REACTIONS (32)
  - Intramedullary rod insertion [Unknown]
  - Fall [Unknown]
  - Arthritis [Unknown]
  - Hypersensitivity [Unknown]
  - Femur fracture [Recovered/Resolved]
  - Femur fracture [Recovered/Resolved]
  - Fracture nonunion [Unknown]
  - Osteoarthritis [Unknown]
  - Bursitis [Unknown]
  - Hordeolum [Unknown]
  - Pneumonia [Unknown]
  - Insomnia [Unknown]
  - Anxiety [Unknown]
  - Hyperlipidaemia [Unknown]
  - Tracheitis [Unknown]
  - Chronic sinusitis [Unknown]
  - Bone density decreased [Unknown]
  - Fatigue [Unknown]
  - Oedema [Unknown]
  - Chronic obstructive pulmonary disease [Not Recovered/Not Resolved]
  - Upper respiratory tract infection [Unknown]
  - Hyperkalaemia [Unknown]
  - Limb asymmetry [Unknown]
  - Cough [Unknown]
  - Arthralgia [Unknown]
  - Lip swelling [Unknown]
  - Rash [Unknown]
  - Arthralgia [Unknown]
  - Pain in extremity [Unknown]
  - Gastrooesophageal reflux disease [Unknown]
  - Dizziness [Unknown]
  - Back pain [Unknown]
